FAERS Safety Report 23080738 (Version 1)
Quarter: 2023Q4

REPORT INFORMATION
  Report Type: Spontaneous
  Country: US (occurrence: None)
  Receive Date: 20231018
  Receipt Date: 20231018
  Transmission Date: 20240110
  Serious: Yes (Hospitalization)
  Sender: FDA-Public Use
  Company Number: None

PATIENT
  Age: 74 Year
  Sex: Male
  Weight: 89 kg

DRUGS (5)
  1. EMPAGLIFLOZIN [Suspect]
     Active Substance: EMPAGLIFLOZIN
     Dosage: FREQUENCY : DAILY;?
     Route: 048
     Dates: start: 20220413
  2. SEMAGLUTIDE [Suspect]
     Active Substance: SEMAGLUTIDE
     Dosage: FREQUENCY : WEEKLY;?
     Route: 058
     Dates: start: 20220604, end: 20221024
  3. METFORMIN [Suspect]
     Active Substance: METFORMIN HYDROCHLORIDE
  4. LISINOPRIL [Suspect]
     Active Substance: LISINOPRIL
  5. PENTOXIFYLLINE [Suspect]
     Active Substance: PENTOXIFYLLINE

REACTIONS (14)
  - Dizziness [None]
  - Hypotension [None]
  - Urinary tract infection [None]
  - Blood creatinine increased [None]
  - Fall [None]
  - Balance disorder [None]
  - Muscular weakness [None]
  - Dizziness [None]
  - Weight decreased [None]
  - Hypophosphataemia [None]
  - Acute kidney injury [None]
  - Dehydration [None]
  - Hypovolaemia [None]
  - Leukocytosis [None]

NARRATIVE: CASE EVENT DATE: 20221023
